FAERS Safety Report 13549509 (Version 1)
Quarter: 2017Q2

REPORT INFORMATION
  Report Type: Spontaneous
  Country: US (occurrence: US)
  Receive Date: 20170516
  Receipt Date: 20170516
  Transmission Date: 20170830
  Serious: Yes (Hospitalization)
  Sender: FDA-Public Use
  Company Number: US-ORPHAN EUROPE-2020796

PATIENT
  Age: 2 Month
  Sex: Female

DRUGS (1)
  1. CARBAGLU [Suspect]
     Active Substance: CARGLUMIC ACID
     Indication: HYPERAMMONAEMIA
     Dates: start: 20160909, end: 20160927

REACTIONS (2)
  - Vomiting [Unknown]
  - Retching [Unknown]

NARRATIVE: CASE EVENT DATE: 20160927
